FAERS Safety Report 9092513 (Version 1)
Quarter: 2013Q1

REPORT INFORMATION
  Report Type: Spontaneous
  Country: US (occurrence: US)
  Receive Date: 20130201
  Receipt Date: 20130201
  Transmission Date: 20140127
  Serious: No
  Sender: FDA-Public Use
  Company Number: US-ABBOTT-13P-163-1032520-00

PATIENT
  Sex: 0

DRUGS (3)
  1. HUMIRA [Suspect]
     Indication: PRODUCT USED FOR UNKNOWN INDICATION
  2. 6MP [Concomitant]
  3. PREDNISONE [Concomitant]

REACTIONS (2)
  - Gastrointestinal haemorrhage [Unknown]
  - Drug ineffective [Unknown]
